FAERS Safety Report 9297833 (Version 2)
Quarter: 2013Q3

REPORT INFORMATION
  Report Type: Spontaneous
  Country: US (occurrence: US)
  Receive Date: 20130520
  Receipt Date: 20130701
  Transmission Date: 20140515
  Serious: No
  Sender: FDA-Public Use
  Company Number: US-PFIZER INC-2013153583

PATIENT
  Age: 31 Year
  Sex: Male

DRUGS (5)
  1. QUILLIVANT XR [Suspect]
     Indication: ATTENTION DEFICIT/HYPERACTIVITY DISORDER
     Dosage: 20 MG, 1X/DAY
     Route: 048
     Dates: start: 20130502
  2. QUILLIVANT XR [Suspect]
     Dosage: 40 MG, 1X/DAY
     Dates: start: 201305, end: 201305
  3. QUILLIVANT XR [Suspect]
     Dosage: 60 MG, 1X/DAY
     Route: 048
     Dates: start: 201305, end: 20130506
  4. QUILLIVANT XR [Suspect]
     Dosage: UNK
     Route: 048
     Dates: start: 20130508
  5. BUSPAR [Concomitant]
     Indication: ANXIETY
     Dosage: 15 MG, 3X/DAY
     Dates: start: 201303

REACTIONS (5)
  - Drug ineffective [Unknown]
  - Tachycardia [Unknown]
  - Irritability [Unknown]
  - Anxiety [Unknown]
  - Headache [Unknown]
